FAERS Safety Report 25261322 (Version 1)
Quarter: 2025Q2

REPORT INFORMATION
  Report Type: Report from Study
  Country: AT (occurrence: AT)
  Receive Date: 20250501
  Receipt Date: 20250501
  Transmission Date: 20250716
  Serious: Yes (Other)
  Sender: ABBVIE
  Company Number: AT-ABBVIE-6246105

PATIENT
  Age: 36 Year
  Sex: Female

DRUGS (6)
  1. RINVOQ [Suspect]
     Active Substance: UPADACITINIB
     Indication: Colitis ulcerative
     Route: 048
  2. METHYLPREDNISOLONE [Concomitant]
     Active Substance: METHYLPREDNISOLONE
     Indication: Product used for unknown indication
  3. PREDNISOLONE [Concomitant]
     Active Substance: PREDNISOLONE
     Indication: Product used for unknown indication
  4. STELARA [Concomitant]
     Active Substance: USTEKINUMAB
     Indication: Product used for unknown indication
  5. AZATHIOPRINE [Concomitant]
     Active Substance: AZATHIOPRINE
     Indication: Product used for unknown indication
  6. Salofalk [Concomitant]
     Indication: Product used for unknown indication

REACTIONS (33)
  - Breast cyst [Unknown]
  - Nausea [Unknown]
  - Sleep disorder [Unknown]
  - Arthralgia [Unknown]
  - Alopecia [Unknown]
  - Pain in extremity [Unknown]
  - Depression [Unknown]
  - Colitis ulcerative [Unknown]
  - Infection susceptibility increased [Unknown]
  - Uveitis [Unknown]
  - Weight increased [Unknown]
  - Anxiety disorder [Unknown]
  - Fatigue [Unknown]
  - Stress [Unknown]
  - Cardiac flutter [Unknown]
  - Endocrine disorder [Unknown]
  - Fibromyalgia [Unknown]
  - Psoriasis [Unknown]
  - Joint swelling [Unknown]
  - Asthenia [Unknown]
  - Fatigue [Unknown]
  - Vaginal cyst [Unknown]
  - Cyst [Unknown]
  - Low density lipoprotein increased [Unknown]
  - Localised infection [Unknown]
  - Onychomycosis [Unknown]
  - Vulvovaginal mycotic infection [Unknown]
  - Cough [Unknown]
  - Rhinorrhoea [Unknown]
  - Headache [Unknown]
  - Pyrexia [Unknown]
  - Hypersomnia [Unknown]
  - Inflammation [Unknown]
